FAERS Safety Report 4487713-0 (Version None)
Quarter: 2004Q4

REPORT INFORMATION
  Report Type: 
  Country: None (occurrence: None)
  Receive Date: 20041027
  Receipt Date: 20041027
  Transmission Date: 20050328
  Serious: Yes (Hospitalization)
  Sender: FDA-Public Use
  Company Number: None

PATIENT
  Age: 54 Year
  Sex: Male
  Weight: 56.6996 kg

DRUGS (10)
  1. METHADONE HCL [Suspect]
     Indication: PAIN
     Dosage: 15 MG BID
  2. ZYRTEC [Concomitant]
  3. NORTRIPTYLINE HCL [Concomitant]
  4. GATIFLOXACIN [Concomitant]
  5. PHENYTOIN [Concomitant]
  6. PREVACID [Concomitant]
  7. TRAMADOL HCL [Concomitant]
  8. LEVOTHYROXINE SODIUM [Concomitant]
  9. VALDECOXIB [Concomitant]
  10. OXYCODONE 10 - 20 MG PO Q2H PRN [Suspect]
     Indication: PAIN
     Dosage: 10 - 20 MG PO Q2H PRN
     Route: 048

REACTIONS (5)
  - CONFUSIONAL STATE [None]
  - DISORIENTATION [None]
  - MENTAL STATUS CHANGES [None]
  - MIOSIS [None]
  - SOMNOLENCE [None]
